FAERS Safety Report 9692775 (Version 2)
Quarter: 2013Q4

REPORT INFORMATION
  Report Type: Spontaneous
  Country: JP (occurrence: JP)
  Receive Date: 20131118
  Receipt Date: 20131118
  Transmission Date: 20140711
  Serious: No
  Sender: FDA-Public Use
  Company Number: JP-JNJFOC-20131015200

PATIENT
  Age: 76 Year
  Sex: Male

DRUGS (1)
  1. DUROTEP [Suspect]
     Indication: CANCER PAIN
     Route: 062

REACTIONS (4)
  - Product adhesion issue [Unknown]
  - Application site pruritus [Recovered/Resolved]
  - Wrong technique in drug usage process [Unknown]
  - Application site dermatitis [Recovered/Resolved]
